FAERS Safety Report 6707668-5 (Version None)
Quarter: 2010Q2

REPORT INFORMATION
  Report Type: 
  Country: None (occurrence: None)
  Receive Date: 20100503
  Receipt Date: 20091007
  Transmission Date: 20101027
  Serious: No
  Sender: FDA-Public Use
  Company Number: US-ASTRAZENECA-2009SE18768

PATIENT
  Age: 55 Year
  Sex: Female
  Weight: 61.7 kg

DRUGS (5)
  1. NEXIUM [Suspect]
     Indication: GASTROOESOPHAGEAL REFLUX DISEASE
     Route: 048
     Dates: start: 20091001
  2. NEXIUM [Suspect]
     Indication: ERUCTATION
     Route: 048
     Dates: start: 20091001
  3. DARVOCET-N 100 [Concomitant]
     Indication: BACK PAIN
  4. RELAFEN [Concomitant]
     Indication: ARTHRITIS
  5. TRAZODONE HCL [Concomitant]
     Indication: DEPRESSION

REACTIONS (5)
  - DRUG INEFFECTIVE [None]
  - ERUCTATION [None]
  - FLATULENCE [None]
  - GASTROOESOPHAGEAL REFLUX DISEASE [None]
  - THROAT IRRITATION [None]
